FAERS Safety Report 12169540 (Version 1)
Quarter: 2016Q1

REPORT INFORMATION
  Report Type: Spontaneous
  Country: US (occurrence: US)
  Receive Date: 20160310
  Receipt Date: 20160310
  Transmission Date: 20160526
  Serious: No
  Sender: FDA-Public Use
  Company Number: US-GLAXOSMITHKLINE-US2016GSK033030

PATIENT
  Sex: Male

DRUGS (4)
  1. NICOTINE MEDICATED CHEWING-GUM [Suspect]
     Active Substance: NICOTINE
     Indication: TOBACCO USER
     Dosage: UNK
  2. NICOTINE TRANSDERMAL PATCH [Suspect]
     Active Substance: NICOTINE
     Indication: TOBACCO USER
     Dosage: 7 MG, UNK
  3. NICOTINE TRANSDERMAL PATCH [Suspect]
     Active Substance: NICOTINE
     Indication: EX-TOBACCO USER
     Dosage: 21 MG, UNK
     Route: 065
  4. NICOTINE MEDICATED CHEWING-GUM [Suspect]
     Active Substance: NICOTINE
     Indication: EX-TOBACCO USER

REACTIONS (2)
  - Expired product administered [Unknown]
  - Drug ineffective [Unknown]
